FAERS Safety Report 9375030 (Version 2)
Quarter: 2013Q3

REPORT INFORMATION
  Report Type: Spontaneous
  Country: US (occurrence: US)
  Receive Date: 20130628
  Receipt Date: 20130822
  Transmission Date: 20140515
  Serious: Yes (Death, Congenital Anomaly, Other)
  Sender: FDA-Public Use
  Company Number: US-009507513-1306USA013180

PATIENT
  Sex: 0

DRUGS (7)
  1. NASONEX [Suspect]
     Indication: RHINITIS ALLERGIC
     Route: 064
  2. OXYCODONE [Concomitant]
     Indication: BACK PAIN
     Dosage: DAILY
     Route: 064
  3. HYDROXYZINE [Concomitant]
     Route: 064
  4. OXYCONTIN [Concomitant]
     Route: 064
  5. FEXOFENADINE HYDROCHLORIDE [Concomitant]
     Route: 064
  6. UNISOM (DOXYLAMINE SUCCINATE) [Concomitant]
     Indication: SLEEP DISORDER
     Dosage: UNK
     Route: 064
  7. OMEPRAZOLE [Concomitant]
     Indication: GASTRITIS
     Dosage: 20 MG, QD
     Route: 064

REACTIONS (2)
  - Trisomy 22 [Fatal]
  - Foetal exposure during pregnancy [Unknown]
